FAERS Safety Report 26170368 (Version 1)
Quarter: 2025Q4

REPORT INFORMATION
  Report Type: Spontaneous
  Country: US (occurrence: US)
  Receive Date: 20251217
  Receipt Date: 20251217
  Transmission Date: 20260117
  Serious: No
  Sender: ARDELYX
  Company Number: US-ARDELYX-2025ARDX008312

PATIENT
  Age: 85 Year
  Sex: Female

DRUGS (2)
  1. XPHOZAH [Suspect]
     Active Substance: TENAPANOR HYDROCHLORIDE
     Indication: Product used for unknown indication
     Dosage: UNK
     Route: 065
  2. CALCIUM ACETATE [Concomitant]
     Active Substance: CALCIUM ACETATE
     Indication: Blood phosphorus
     Dosage: 8 MG/DL
     Route: 065

REACTIONS (2)
  - Anal incontinence [Unknown]
  - Diarrhoea [Not Recovered/Not Resolved]
